FAERS Safety Report 22314520 (Version 1)
Quarter: 2023Q2

REPORT INFORMATION
  Report Type: Spontaneous
  Country: US (occurrence: None)
  Receive Date: 20230511
  Receipt Date: 20230511
  Transmission Date: 20230721
  Serious: No
  Sender: FDA-Public Use
  Company Number: None

PATIENT

DRUGS (2)
  1. HYDROXYPROGESTERONE CAPROATE [Suspect]
     Active Substance: HYDROXYPROGESTERONE CAPROATE
  2. PROGESTERONE [Suspect]
     Active Substance: PROGESTERONE

REACTIONS (5)
  - Wrong product administered [None]
  - Maternal exposure during pregnancy [None]
  - Foetal exposure during pregnancy [None]
  - Product prescribing error [None]
  - Product availability issue [None]

NARRATIVE: CASE EVENT DATE: 20141225
